FAERS Safety Report 8051574-3 (Version None)
Quarter: 2012Q1

REPORT INFORMATION
  Report Type: 
  Country: None (occurrence: None)
  Receive Date: 20120117
  Receipt Date: 20120104
  Transmission Date: 20120608
  Serious: Yes (Disabling)
  Sender: FDA-Public Use
  Company Number: GB-MYLANLABS-2011S1014001

PATIENT
  Age: 65 Year
  Sex: Male
  Weight: 73 kg

DRUGS (4)
  1. FINASTERIDE [Concomitant]
     Indication: PROSTATISM
     Route: 048
     Dates: start: 20060814
  2. TAMSULOSIN HCL [Concomitant]
     Indication: URINARY RETENTION
     Route: 048
     Dates: start: 20000424
  3. ASPIRIN [Concomitant]
     Indication: TRANSIENT ISCHAEMIC ATTACK
     Route: 048
     Dates: start: 20081112
  4. SIMVASTATIN [Suspect]
     Indication: TRANSIENT ISCHAEMIC ATTACK
     Route: 048
     Dates: start: 20090325, end: 20100729

REACTIONS (1)
  - PARKINSON'S DISEASE [None]
